FAERS Safety Report 14603791 (Version 1)
Quarter: 2018Q1

REPORT INFORMATION
  Report Type: Spontaneous
  Country: US (occurrence: US)
  Receive Date: 20180305
  Receipt Date: 20180305
  Transmission Date: 20180509
  Serious: No
  Sender: FDA-Public Use
  Company Number: None

PATIENT
  Age: 56 Year
  Sex: Female
  Weight: 69.75 kg

DRUGS (25)
  1. KETOTIFEN [Concomitant]
     Active Substance: KETOTIFEN
  2. PROGESTERONE. [Concomitant]
     Active Substance: PROGESTERONE
  3. MELATONIN [Concomitant]
     Active Substance: MELATONIN
  4. DHEA [Concomitant]
     Active Substance: PRASTERONE
  5. AMLODIPINE [Suspect]
     Active Substance: AMLODIPINE BESYLATE
     Indication: HYPERTENSION
     Dosage: ?          QUANTITY:1 TABLET(S);?
     Route: 048
  6. HYDROCORTISONE. [Concomitant]
     Active Substance: HYDROCORTISONE
  7. B VITAMINS [Concomitant]
     Active Substance: CYANOCOBALAMIN\DEXPANTHENOL\NIACINAMIDE\PYRIDOXINE HYDROCHLORIDE\RIBOFLAVIN 5^-PHOSPHATE SODIUM\THIAMINE HYDROCHLORIDE\VITAMIN B COMPLEX
  8. BOSWELLIA [Concomitant]
  9. MAGNESIUM [Concomitant]
     Active Substance: MAGNESIUM
  10. T3 [Concomitant]
     Active Substance: LIOTHYRONINE SODIUM
  11. DEXAMETHASONE. [Concomitant]
     Active Substance: DEXAMETHASONE
  12. ANTIOXIDANTS [Concomitant]
  13. CUERCETIN [Concomitant]
  14. FEXOFENADINE [Concomitant]
     Active Substance: FEXOFENADINE\FEXOFENADINE HYDROCHLORIDE
  15. VALGANCICLOVIR. [Concomitant]
     Active Substance: VALGANCICLOVIR
  16. RIFAMPIN. [Concomitant]
     Active Substance: RIFAMPIN
  17. CALCIUM [Concomitant]
     Active Substance: CALCIUM
  18. AZITHROMYCIN ANHYDROUS. [Concomitant]
     Active Substance: AZITHROMYCIN ANHYDROUS
  19. CURCUMIN [Concomitant]
     Active Substance: CURCUMIN
  20. T4 [Concomitant]
     Active Substance: LEVOTHYROXINE
  21. DOXYCYCLINE. [Concomitant]
     Active Substance: DOXYCYCLINE
  22. GAMUNEX-C [Concomitant]
     Active Substance: HUMAN IMMUNOGLOBULIN G
  23. PREGNENOLONE [Concomitant]
     Active Substance: PREGNENOLONE
  24. IODINE. [Concomitant]
     Active Substance: IODINE
  25. AMINO ACIDS [Concomitant]
     Active Substance: AMINO ACIDS

REACTIONS (6)
  - Platelet count decreased [None]
  - Haemoglobin decreased [None]
  - Therapy cessation [None]
  - Fatigue [None]
  - Somnolence [None]
  - Haematocrit decreased [None]

NARRATIVE: CASE EVENT DATE: 20180115
